FAERS Safety Report 14364667 (Version 1)
Quarter: 2018Q1

REPORT INFORMATION
  Report Type: Spontaneous
  Country: US (occurrence: US)
  Receive Date: 20180106
  Receipt Date: 20180106
  Transmission Date: 20180509
  Serious: Yes (Other)
  Sender: FDA-Public Use
  Company Number: None

PATIENT
  Age: 21 Year
  Sex: Female
  Weight: 53.55 kg

DRUGS (4)
  1. BUDESONIDE. [Concomitant]
     Active Substance: BUDESONIDE
  2. ALBUTEROL. [Concomitant]
     Active Substance: ALBUTEROL
  3. TERCONAZOLE. [Suspect]
     Active Substance: TERCONAZOLE
     Indication: FUNGAL INFECTION
     Dosage: ?          QUANTITY:3 SUPPOSITORY(IES);?
     Route: 067
     Dates: start: 20180106, end: 20180106
  4. MULTI-VITE VITAMINS [Concomitant]

REACTIONS (2)
  - Headache [None]
  - Heart rate increased [None]

NARRATIVE: CASE EVENT DATE: 20180106
